FAERS Safety Report 5244860-3 (Version None)
Quarter: 2007Q1

REPORT INFORMATION
  Report Type: 
  Country: None (occurrence: None)
  Receive Date: 20070221
  Receipt Date: 20070221
  Transmission Date: 20070707
  Serious: No
  Sender: FDA-Public Use
  Company Number: None

PATIENT
  Age: 39 Year
  Sex: Female
  Weight: 91 kg

DRUGS (3)
  1. TUBERCULIN PPD, 5TU/0.1ML,PARKEDALE PHARMACEUTICALS [Suspect]
     Indication: TUBERCULIN TEST
     Dosage: 0.1 UNITS (5TU) ONCE INTRADERMA
     Route: 023
     Dates: start: 20061220
  2. LORATADINE [Concomitant]
  3. FLUTICASONE PROPIONATE [Concomitant]

REACTIONS (4)
  - FALSE POSITIVE TUBERCULOSIS TEST [None]
  - INJECTION SITE ERYTHEMA [None]
  - INJECTION SITE PAIN [None]
  - PHARMACEUTICAL PRODUCT COMPLAINT [None]
